FAERS Safety Report 20486510 (Version 2)
Quarter: 2022Q1

REPORT INFORMATION
  Report Type: Spontaneous
  Country: IT (occurrence: IT)
  Receive Date: 20220217
  Receipt Date: 20220225
  Transmission Date: 20220424
  Serious: No
  Sender: FDA-Public Use
  Company Number: IT-NOVARTISPH-NVSC2022IT034672

PATIENT
  Age: 19 Year
  Sex: Male

DRUGS (5)
  1. TACROLIMUS [Suspect]
     Active Substance: TACROLIMUS
     Indication: PSTPIP1-associated myeloid-related proteinaemia inflammatory syndrome
     Dosage: UNK, UNKNOWN (MAINTAINING SERUM RANGE OF 4-6 NG/DL)
     Route: 065
  2. TACROLIMUS [Suspect]
     Active Substance: TACROLIMUS
     Indication: Focal segmental glomerulosclerosis
  3. PREDNISONE [Concomitant]
     Active Substance: PREDNISONE
     Indication: PSTPIP1-associated myeloid-related proteinaemia inflammatory syndrome
     Dosage: 30 MG, QD
     Route: 065
  4. PREDNISONE [Concomitant]
     Active Substance: PREDNISONE
     Indication: Focal segmental glomerulosclerosis
  5. CANAKINUMAB [Concomitant]
     Active Substance: CANAKINUMAB
     Indication: PSTPIP1-associated myeloid-related proteinaemia inflammatory syndrome
     Dosage: 150 MG, QMO
     Route: 041

REACTIONS (2)
  - Therapy partial responder [Unknown]
  - Product use in unapproved indication [Unknown]
